FAERS Safety Report 6289676-4 (Version None)
Quarter: 2009Q3

REPORT INFORMATION
  Report Type: 
  Country: None (occurrence: None)
  Receive Date: 20090730
  Receipt Date: 20080610
  Transmission Date: 20100115
  Serious: No
  Sender: FDA-Public Use
  Company Number: US-BRISTOL-MYERS SQUIBB COMPANY-14222970

PATIENT
  Age: 66 Year
  Sex: Female
  Weight: 93 kg

DRUGS (8)
  1. COUMADIN [Suspect]
     Indication: DEEP VEIN THROMBOSIS
     Dosage: INCREASED TO 6MG 1 TABLET AND 1MG 1 TABLET DAILY, ON 05-JUN-2008.
     Dates: start: 20080501
  2. WARFARIN SODIUM [Suspect]
     Dates: start: 20080526
  3. HEPARIN [Concomitant]
     Indication: DEEP VEIN THROMBOSIS
     Dates: start: 20080519
  4. SYNTHROID [Concomitant]
  5. LORAZEPAM [Concomitant]
  6. VICODIN [Concomitant]
     Dates: end: 20080530
  7. TYLENOL (CAPLET) [Concomitant]
     Dates: start: 20080530
  8. ASCORBIC ACID [Concomitant]

REACTIONS (5)
  - DYSPEPSIA [None]
  - HYPOAESTHESIA [None]
  - HYPOAESTHESIA ORAL [None]
  - PRURITUS [None]
  - URTICARIA [None]
